FAERS Safety Report 9399987 (Version 1)
Quarter: 2013Q3

REPORT INFORMATION
  Report Type: Spontaneous
  Country: US (occurrence: US)
  Receive Date: 20130715
  Receipt Date: 20130715
  Transmission Date: 20140515
  Serious: No
  Sender: FDA-Public Use
  Company Number: US-ELI_LILLY_AND_COMPANY-US201305000954

PATIENT
  Age: 57 Year
  Sex: Male

DRUGS (5)
  1. CYMBALTA [Suspect]
     Indication: PAIN
     Dosage: 60 MG, QD
     Dates: start: 200809
  2. CYMBALTA [Suspect]
     Dosage: 60 MG, BID
     Dates: end: 201201
  3. HYDROCODONE [Concomitant]
  4. FLEXERIL [Concomitant]
  5. MELOXICAM [Concomitant]

REACTIONS (18)
  - Alanine aminotransferase increased [Unknown]
  - Oesophageal discomfort [Unknown]
  - Proctalgia [Unknown]
  - Blood testosterone decreased [Recovering/Resolving]
  - Somnambulism [Unknown]
  - Sleep talking [Unknown]
  - Back injury [Not Recovered/Not Resolved]
  - Head injury [Unknown]
  - Testicular pain [Recovered/Resolved]
  - Dry mouth [Unknown]
  - Constipation [Unknown]
  - Abdominal discomfort [Unknown]
  - Diarrhoea [Unknown]
  - Confusional state [Unknown]
  - Fall [Unknown]
  - Dyspepsia [Unknown]
  - Abdominal pain [Unknown]
  - Blood glucose increased [Unknown]
